FAERS Safety Report 10926615 (Version 5)
Quarter: 2015Q2

REPORT INFORMATION
  Report Type: Spontaneous
  Country: US (occurrence: US)
  Receive Date: 20150318
  Receipt Date: 20150514
  Transmission Date: 20150821
  Serious: Yes (Death, Hospitalization, Other)
  Sender: FDA-Public Use
  Company Number: US-JNJFOC-20150312992

PATIENT
  Age: 73 Year
  Sex: Female
  Weight: 62 kg

DRUGS (14)
  1. IMBRUVICA [Suspect]
     Active Substance: IBRUTINIB
     Indication: MANTLE CELL LYMPHOMA
     Route: 048
     Dates: start: 20150217, end: 20150304
  2. IMBRUVICA [Suspect]
     Active Substance: IBRUTINIB
     Indication: MANTLE CELL LYMPHOMA
     Route: 048
     Dates: start: 20141029, end: 20150217
  3. SYNTHROID [Concomitant]
     Active Substance: LEVOTHYROXINE SODIUM
  4. COREG [Concomitant]
     Active Substance: CARVEDILOL
  5. OXYCODONE [Concomitant]
     Active Substance: OXYCODONE
  6. LACTULOSE. [Concomitant]
     Active Substance: LACTULOSE
  7. ASPIRIN. [Concomitant]
     Active Substance: ASPIRIN
  8. SENOKOT [Concomitant]
     Active Substance: SENNOSIDES
  9. POTASSIUM [Concomitant]
     Active Substance: POTASSIUM
  10. PHENERGAN [Concomitant]
     Active Substance: PROMETHAZINE HYDROCHLORIDE
  11. ALLOPURINOL. [Concomitant]
     Active Substance: ALLOPURINOL
  12. XANAX [Concomitant]
     Active Substance: ALPRAZOLAM
  13. SINGULAIR [Concomitant]
     Active Substance: MONTELUKAST SODIUM
  14. LASIX [Concomitant]
     Active Substance: FUROSEMIDE

REACTIONS (5)
  - Depression [Unknown]
  - Contusion [Unknown]
  - Death [Fatal]
  - Subdural haematoma [Recovered/Resolved]
  - Disease progression [Unknown]

NARRATIVE: CASE EVENT DATE: 2015
